FAERS Safety Report 9158370 (Version 1)
Quarter: 2013Q1

REPORT INFORMATION
  Report Type: Spontaneous
  Country: CA (occurrence: CA)
  Receive Date: 20130312
  Receipt Date: 20130312
  Transmission Date: 20140127
  Serious: Yes (Other)
  Sender: FDA-Public Use
  Company Number: CA-PFIZER INC-2012227079

PATIENT
  Age: 39 Year
  Sex: Female
  Weight: 81.63 kg

DRUGS (3)
  1. CHAMPIX [Suspect]
     Indication: SMOKING CESSATION THERAPY
     Dosage: 1 MG, 2X/DAY
     Route: 048
     Dates: start: 20080904, end: 20081106
  2. VITAMIN B12 [Concomitant]
     Dosage: UNK
  3. VITAMIN C [Concomitant]
     Dosage: UNK

REACTIONS (6)
  - Violence-related symptom [Unknown]
  - Mood swings [Unknown]
  - Irritability [Unknown]
  - Agitation [Unknown]
  - Frustration [Unknown]
  - Anger [Unknown]
